FAERS Safety Report 4524786-0 (Version None)
Quarter: 2004Q4

REPORT INFORMATION
  Report Type: 
  Country: None (occurrence: None)
  Receive Date: 20041213
  Receipt Date: 20041019
  Transmission Date: 20050328
  Serious: Yes (Hospitalization)
  Sender: FDA-Public Use
  Company Number: 200413490JP

PATIENT
  Age: 51 Year
  Sex: Female
  Weight: 79 kg

DRUGS (8)
  1. ARAVA [Suspect]
     Indication: RHEUMATOID ARTHRITIS
     Route: 048
     Dates: start: 20040403, end: 20040716
  2. URSO [Concomitant]
     Indication: LIVER DISORDER
     Route: 048
  3. APLACE [Concomitant]
     Indication: GASTRITIS
     Route: 048
  4. PREDONINE [Concomitant]
     Indication: RHEUMATOID ARTHRITIS
     Route: 048
  5. GASTROM [Concomitant]
     Indication: GASTRITIS
     Route: 048
  6. GASLON [Concomitant]
     Indication: GASTRITIS
     Route: 048
  7. ONE-ALPHA [Concomitant]
     Indication: OSTEOPOROSIS
     Route: 048
  8. FERROMIA [Concomitant]
     Indication: IRON DEFICIENCY
     Route: 048

REACTIONS (3)
  - AUTOIMMUNE HEPATITIS [None]
  - LABORATORY TEST ABNORMAL [None]
  - WHITE BLOOD CELL COUNT DECREASED [None]
